FAERS Safety Report 7979724-5 (Version None)
Quarter: 2011Q4

REPORT INFORMATION
  Report Type: 
  Country: None (occurrence: None)
  Receive Date: 20111214
  Receipt Date: 20111213
  Transmission Date: 20120403
  Serious: Yes (Hospitalization, Other)
  Sender: FDA-Public Use
  Company Number: US-AMGEN-USASP2011063812

PATIENT
  Age: 80 Year
  Sex: Male
  Weight: 84.354 kg

DRUGS (5)
  1. CYCLOPHOSPHAMIDE [Concomitant]
     Indication: NON-HODGKIN'S LYMPHOMA
     Dosage: 1600 MG, Q3WK
     Route: 042
     Dates: start: 20111020
  2. VINCRISTINE [Concomitant]
     Indication: NON-HODGKIN'S LYMPHOMA
     Dosage: 2 MG, Q3WK
     Route: 042
     Dates: start: 20111020
  3. RITUXIMAB [Concomitant]
     Indication: NON-HODGKIN'S LYMPHOMA
     Dosage: 800 MG, Q3WK
     Route: 042
     Dates: start: 20111020
  4. CORTICOSTEROIDS [Concomitant]
     Indication: IDIOPATHIC THROMBOCYTOPENIC PURPURA
  5. NPLATE [Suspect]
     Indication: IDIOPATHIC THROMBOCYTOPENIC PURPURA
     Dosage: 90 MUG, UNK
     Route: 058

REACTIONS (2)
  - RESPIRATORY TRACT IRRITATION [None]
  - PNEUMONIA [None]
